FAERS Safety Report 7929998-1 (Version None)
Quarter: 2011Q4

REPORT INFORMATION
  Report Type: 
  Country: None (occurrence: None)
  Receive Date: 20111121
  Receipt Date: 20111110
  Transmission Date: 20120403
  Serious: Yes (Hospitalization)
  Sender: FDA-Public Use
  Company Number: PHFR2011IE03889

PATIENT
  Sex: Female

DRUGS (2)
  1. CLOZARIL [Suspect]
     Indication: SCHIZOPHRENIA
     Dosage: 300 MG, QD
     Route: 048
     Dates: start: 20010701
  2. STELAZINE [Concomitant]
     Dosage: 3 MG, PER DAY

REACTIONS (5)
  - WHITE BLOOD CELL COUNT INCREASED [None]
  - CHEST DISCOMFORT [None]
  - NEUTROPHIL COUNT INCREASED [None]
  - ASTHMA [None]
  - BRONCHITIS [None]
